FAERS Safety Report 7075158-9 (Version None)
Quarter: 2010Q4

REPORT INFORMATION
  Report Type: 
  Country: None (occurrence: None)
  Receive Date: 20101029
  Receipt Date: 20100504
  Transmission Date: 20110411
  Serious: No
  Sender: FDA-Public Use
  Company Number: US-WYE-H14767210

PATIENT
  Sex: Female

DRUGS (2)
  1. ALAVERT [Suspect]
     Indication: RHINORRHOEA
     Dosage: UNKNOWN
     Route: 048
  2. ALAVERT [Suspect]
     Indication: SNEEZING

REACTIONS (1)
  - DRUG INEFFECTIVE [None]
